FAERS Safety Report 10061909 (Version 4)
Quarter: 2014Q2

REPORT INFORMATION
  Report Type: Spontaneous
  Country: BE (occurrence: BE)
  Receive Date: 20140407
  Receipt Date: 20140610
  Transmission Date: 20141212
  Serious: Yes (Other)
  Sender: FDA-Public Use
  Company Number: BE-BEH-2014041592

PATIENT
  Age: 68 Year
  Sex: Female

DRUGS (57)
  1. HIZENTRA [Suspect]
     Dosage: 200MG/ML
     Route: 058
     Dates: start: 20130912, end: 20130912
  2. HIZENTRA [Suspect]
     Dosage: 200MG/ML
     Route: 058
     Dates: start: 20130912, end: 20130912
  3. HIZENTRA [Suspect]
     Dosage: 200MG/ML
     Route: 058
     Dates: start: 20130919, end: 20130919
  4. HIZENTRA [Suspect]
     Dosage: 200MG/ML
     Route: 058
     Dates: start: 20130919, end: 20130919
  5. HIZENTRA [Suspect]
     Dosage: 200MG/ML
     Route: 058
     Dates: start: 20130926, end: 20130926
  6. HIZENTRA [Suspect]
     Dosage: 200MG/ML
     Route: 058
     Dates: start: 20130926, end: 20130926
  7. HIZENTRA [Suspect]
     Dosage: 200MG/ML
     Route: 058
     Dates: start: 20131003, end: 20131003
  8. HIZENTRA [Suspect]
     Dosage: 200MG/ML
     Route: 058
     Dates: start: 20131003, end: 20131003
  9. HIZENTRA [Suspect]
     Dosage: 200MG/ML
     Route: 058
     Dates: start: 20131010, end: 20131010
  10. HIZENTRA [Suspect]
     Dosage: 200MG/ML
     Route: 058
     Dates: start: 20131010, end: 20131010
  11. HIZENTRA [Suspect]
     Dosage: 200MG/ML
     Route: 058
     Dates: start: 20131017, end: 20131017
  12. HIZENTRA [Suspect]
     Dosage: 200MG/ML
     Route: 058
     Dates: start: 20131017, end: 20131017
  13. HIZENTRA [Suspect]
     Dosage: 200MG/ML
     Route: 058
     Dates: start: 20131024, end: 20131024
  14. HIZENTRA [Suspect]
     Dosage: 200MG/ML
     Route: 058
     Dates: start: 20131024, end: 20131024
  15. HIZENTRA [Suspect]
     Dosage: 200MG/ML
     Route: 058
     Dates: start: 20131031, end: 20131031
  16. HIZENTRA [Suspect]
     Dosage: 200MG/ML
     Route: 058
     Dates: start: 20131031, end: 20131031
  17. HIZENTRA [Suspect]
     Dosage: 200MG/ML
     Route: 058
     Dates: start: 20131107, end: 20131107
  18. HIZENTRA [Suspect]
     Dosage: 200MG/ML
     Route: 058
     Dates: start: 20131107, end: 20131107
  19. HIZENTRA [Suspect]
     Dosage: 200MG/ML
     Route: 058
     Dates: start: 20131114, end: 20131114
  20. HIZENTRA [Suspect]
     Indication: CHRONIC LYMPHOCYTIC LEUKAEMIA
     Dosage: 200MG/ML
     Route: 058
     Dates: start: 20131114, end: 20131114
  21. HIZENTRA [Suspect]
     Dosage: 200MG/ML
     Route: 058
     Dates: start: 20131121, end: 20131121
  22. HIZENTRA [Suspect]
     Dosage: 200MG/ML
     Route: 058
     Dates: start: 20131121, end: 20131121
  23. HIZENTRA [Suspect]
     Dosage: 200MG/ML
     Route: 058
     Dates: start: 20131128, end: 20131128
  24. HIZENTRA [Suspect]
     Dosage: 200MG/ML
     Route: 058
     Dates: start: 20131128, end: 20131128
  25. HIZENTRA [Suspect]
     Dosage: 200MG/ML
     Route: 058
     Dates: start: 20131205, end: 20131205
  26. HIZENTRA [Suspect]
     Dosage: 200MG/ML
     Route: 058
     Dates: start: 20131205, end: 20131205
  27. HIZENTRA [Suspect]
     Dosage: 200MG/ML
     Route: 058
     Dates: start: 20131219, end: 20131219
  28. HIZENTRA [Suspect]
     Dosage: 200MG/ML
     Route: 058
     Dates: start: 20131219, end: 20131219
  29. HIZENTRA [Suspect]
     Dosage: 200MG/ML
     Route: 058
     Dates: start: 20131212, end: 20131212
  30. HIZENTRA [Suspect]
     Indication: RESPIRATORY TRACT INFECTION
     Dosage: 200MG/ML
     Route: 058
     Dates: start: 20131212, end: 20131212
  31. HIZENTRA [Suspect]
     Dosage: 200MG/ML
     Route: 058
     Dates: start: 20131226, end: 20131226
  32. HIZENTRA [Suspect]
     Dosage: 200MG/ML
     Route: 058
     Dates: start: 20131226, end: 20131226
  33. HIZENTRA [Suspect]
     Dosage: 200MG/ML
     Route: 058
     Dates: start: 20140102, end: 20140102
  34. HIZENTRA [Suspect]
     Dosage: 200MG/ML
     Route: 058
     Dates: start: 20140102, end: 20140102
  35. HIZENTRA [Suspect]
     Dosage: 200MG/ML
     Route: 058
     Dates: start: 20140109, end: 20140109
  36. HIZENTRA [Suspect]
     Dosage: 200MG/ML
     Route: 058
     Dates: start: 20140109, end: 20140109
  37. HIZENTRA [Suspect]
     Dosage: 200MG/ML
     Route: 058
     Dates: start: 20140116, end: 20140116
  38. HIZENTRA [Suspect]
     Dosage: 200MG/ML
     Route: 058
     Dates: start: 20140116, end: 20140116
  39. HIZENTRA [Suspect]
     Dosage: 200MG/ML
     Route: 058
     Dates: start: 20140130, end: 20140130
  40. HIZENTRA [Suspect]
     Dosage: 200MG/ML
     Route: 058
     Dates: start: 20140130, end: 20140130
  41. HIZENTRA [Suspect]
     Dosage: 200MG/ML
     Route: 058
     Dates: start: 20140206, end: 20140206
  42. HIZENTRA [Suspect]
     Dosage: 200MG/ML
     Route: 058
     Dates: start: 20140206, end: 20140206
  43. HIZENTRA [Suspect]
     Route: 058
     Dates: start: 20140123, end: 20140123
  44. HIZENTRA [Suspect]
     Route: 058
     Dates: start: 20140123, end: 20140123
  45. HIZENTRA [Suspect]
     Dosage: 200MG/ML
     Route: 058
     Dates: start: 20140213, end: 20140213
  46. HIZENTRA [Suspect]
     Dosage: 200MG/ML
     Route: 058
     Dates: start: 20140213, end: 20140213
  47. HIZENTRA [Suspect]
     Dosage: 200MG/ML
     Route: 058
     Dates: start: 20140220, end: 20140220
  48. HIZENTRA [Suspect]
     Dosage: 200MG/ML
     Route: 058
     Dates: start: 20140220, end: 20140220
  49. HIZENTRA [Suspect]
     Dosage: 200MG/ML
     Route: 058
     Dates: start: 20140227, end: 20140227
  50. HIZENTRA [Suspect]
     Dosage: 200MG/ML
     Route: 058
     Dates: start: 20140227, end: 20140227
  51. HIZENTRA [Suspect]
     Dosage: 200MG/ML
     Route: 058
     Dates: start: 20140306, end: 20140306
  52. HIZENTRA [Suspect]
     Dosage: 200MG/ML
     Route: 058
     Dates: start: 20140306, end: 20140306
  53. HIZENTRA [Suspect]
     Dosage: 200MG/ML
     Route: 058
     Dates: start: 20140313, end: 20140313
  54. HIZENTRA [Suspect]
     Dosage: 200MG/ML
     Route: 058
     Dates: start: 20140313, end: 20140313
  55. HIZENTRA [Suspect]
     Dosage: 200MG/ML
     Route: 058
     Dates: start: 20140320, end: 20140320
  56. HIZENTRA [Suspect]
     Dosage: 200MG/ML
     Route: 058
     Dates: start: 20140320, end: 20140320
  57. HIZENTRA [Suspect]
     Dates: start: 20140422

REACTIONS (3)
  - Drug ineffective [Not Recovered/Not Resolved]
  - Nasopharyngitis [Not Recovered/Not Resolved]
  - Infection [Not Recovered/Not Resolved]
